FAERS Safety Report 4914529-0 (Version None)
Quarter: 2006Q1

REPORT INFORMATION
  Report Type: 
  Country: None (occurrence: None)
  Receive Date: 20060216
  Receipt Date: 20051104
  Transmission Date: 20060701
  Serious: Yes (Death, Hospitalization)
  Sender: FDA-Public Use
  Company Number: US-MERCK-0511USA00763

PATIENT
  Age: 61 Year
  Sex: Female
  Weight: 95 kg

DRUGS (14)
  1. VIOXX [Suspect]
     Indication: ARTHRITIS
     Route: 048
     Dates: start: 20010921, end: 20040126
  2. VIOXX [Suspect]
     Route: 048
     Dates: start: 20010921, end: 20040126
  3. VIOXX [Suspect]
     Indication: ANALGESIC EFFECT
     Route: 048
     Dates: start: 20010921, end: 20040126
  4. VIOXX [Suspect]
     Route: 048
     Dates: start: 20010921, end: 20040126
  5. ZESTRIL [Concomitant]
     Route: 065
     Dates: start: 20000101, end: 20040126
  6. INDERAL [Concomitant]
     Route: 065
     Dates: start: 19950101, end: 20040126
  7. CEPHALEXIN [Concomitant]
     Indication: INFECTION
     Route: 065
  8. SYNTHROID [Concomitant]
     Indication: HYPOTHYROIDISM
     Route: 065
  9. PREMARIN [Concomitant]
     Indication: MENOPAUSE
     Route: 065
     Dates: start: 19910101, end: 20040101
  10. DETROL [Concomitant]
     Indication: HYPERTONIC BLADDER
     Route: 065
  11. ADALAT [Concomitant]
     Indication: HYPERTENSION
     Route: 065
     Dates: start: 20000101, end: 20040126
  12. NIFEDIAC [Concomitant]
     Indication: HYPERTENSION
     Route: 065
     Dates: start: 20030101, end: 20040126
  13. PROCARDIA [Concomitant]
     Indication: HYPERTENSION
     Route: 065
     Dates: start: 20000101, end: 20040126
  14. TYLENOL [Concomitant]
     Route: 065

REACTIONS (10)
  - BLOOD PRESSURE INCREASED [None]
  - BRAIN OEDEMA [None]
  - CARDIAC DISORDER [None]
  - CARDIOMEGALY [None]
  - CEREBROVASCULAR ACCIDENT [None]
  - CORONARY ARTERY DISEASE [None]
  - FAECAL INCONTINENCE [None]
  - INFLUENZA LIKE ILLNESS [None]
  - RASH PAPULAR [None]
  - RESPIRATORY FAILURE [None]
